FAERS Safety Report 9749800 (Version 2)
Quarter: 2014Q1

REPORT INFORMATION
  Report Type: Report from Study
  Country: ES (occurrence: ES)
  Receive Date: 20131212
  Receipt Date: 20140203
  Transmission Date: 20141002
  Serious: Yes (Hospitalization)
  Sender: FDA-Public Use
  Company Number: ES-009507513-1312ESP004944

PATIENT
  Age: 70 Year
  Sex: Female
  Weight: 92 kg

DRUGS (10)
  1. BOCEPREVIR [Suspect]
     Indication: CHRONIC HEPATITIS C
     Dosage: UNK, QD
     Route: 048
     Dates: start: 20130305
  2. BOCEPREVIR [Suspect]
     Dosage: UNK, QD
     Route: 048
     Dates: end: 20140106
  3. PEGASYS [Suspect]
     Indication: CHRONIC HEPATITIS C
     Dosage: 180 MICROGRAM, QW
     Dates: start: 20130204, end: 20130611
  4. PEGASYS [Suspect]
     Dosage: 135 MICROGRAM, QW
     Dates: start: 20130611
  5. PEGASYS [Suspect]
     Dosage: UNK
     Dates: end: 20131230
  6. COPEGUS [Suspect]
     Indication: CHRONIC HEPATITIS C
     Dosage: UNK, QD
     Route: 048
     Dates: start: 20130204, end: 20130305
  7. COPEGUS [Suspect]
     Dosage: 800 MG, QD
     Route: 048
     Dates: start: 20130305, end: 20130402
  8. COPEGUS [Suspect]
     Dosage: 600 MG, QD
     Dates: start: 20130402
  9. COPEGUS [Suspect]
     Dosage: 400 MG, QD
     Dates: start: 20131015
  10. COPEGUS [Suspect]
     Dosage: UNK
     Dates: end: 20140106

REACTIONS (1)
  - Campylobacter gastroenteritis [Recovered/Resolved]
